FAERS Safety Report 9878667 (Version 2)
Quarter: 2014Q1

REPORT INFORMATION
  Report Type: Spontaneous
  Country: US (occurrence: US)
  Receive Date: 20140206
  Receipt Date: 20140206
  Transmission Date: 20141002
  Serious: No
  Sender: FDA-Public Use
  Company Number: US-ALLERGAN-1308764US

PATIENT
  Age: 62 Year
  Sex: Female

DRUGS (4)
  1. BOTOX COSMETIC [Suspect]
     Indication: SKIN WRINKLING
     Dosage: 24 UNITS, SINGLE
     Route: 030
     Dates: start: 20130605, end: 20130605
  2. BOTOX COSMETIC [Suspect]
     Indication: SKIN WRINKLING
  3. ASA [Concomitant]
     Dosage: UNK
  4. VAGIFEM [Concomitant]
     Dosage: UNK

REACTIONS (4)
  - Wrong technique in drug usage process [Unknown]
  - Off label use [Unknown]
  - Muscle twitching [Unknown]
  - Eyelid ptosis [Unknown]
